FAERS Safety Report 6515935-3 (Version None)
Quarter: 2009Q4

REPORT INFORMATION
  Report Type: 
  Country: None (occurrence: None)
  Receive Date: 20091223
  Receipt Date: 20090408
  Transmission Date: 20100525
  Serious: No
  Sender: FDA-Public Use
  Company Number: US-ABBOTT-05P-163-0532172-00

PATIENT
  Sex: Male
  Weight: 95.34 kg

DRUGS (1)
  1. LUPRON DEPOT-4 [Suspect]
     Indication: PROSTATE CANCER
     Route: 030
     Dates: start: 20050101, end: 20080101

REACTIONS (7)
  - ANAEMIA [None]
  - HOT FLUSH [None]
  - HYPERTENSION [None]
  - SINUS CONGESTION [None]
  - URINARY TRACT INFECTION [None]
  - URINE FLOW DECREASED [None]
  - WEIGHT INCREASED [None]
